FAERS Safety Report 18864928 (Version 1)
Quarter: 2021Q1

REPORT INFORMATION
  Report Type: Spontaneous
  Country: US (occurrence: US)
  Receive Date: 20210208
  Receipt Date: 20210208
  Transmission Date: 20210420
  Serious: Yes (Other)
  Sender: FDA-Public Use
  Company Number: None

PATIENT
  Age: 66 Year
  Sex: Male
  Weight: 74.25 kg

DRUGS (9)
  1. MYSOLINE [Concomitant]
     Active Substance: PRIMIDONE
  2. MULTIVITAMIN [Concomitant]
     Active Substance: VITAMINS
  3. VITAMIN D3 [Concomitant]
     Active Substance: CHOLECALCIFEROL
  4. CALCIUM [Concomitant]
     Active Substance: CALCIUM
  5. FINASTERIDE. [Suspect]
     Active Substance: FINASTERIDE
     Indication: HAIR GROWTH ABNORMAL
     Route: 048
     Dates: start: 20180207, end: 20180615
  6. GLUCOSAMINE [Concomitant]
     Active Substance: GLUCOSAMINE
  7. KEPPRA [Concomitant]
     Active Substance: LEVETIRACETAM
  8. GRAPESEED [Concomitant]
  9. ZINC. [Concomitant]
     Active Substance: ZINC

REACTIONS (1)
  - Erectile dysfunction [None]

NARRATIVE: CASE EVENT DATE: 20180225
